FAERS Safety Report 18088704 (Version 2)
Quarter: 2024Q4

REPORT INFORMATION
  Report Type: Spontaneous
  Country: SE (occurrence: SE)
  Receive Date: 20200729
  Receipt Date: 20241028
  Transmission Date: 20250115
  Serious: Yes (Death, Other)
  Sender: TAKEDA
  Company Number: SE-LFBP-202000192

PATIENT
  Sex: Male

DRUGS (1)
  1. ANTI-INHIBITOR COAGULANT COMPLEX [Suspect]
     Active Substance: ANTI-INHIBITOR COAGULANT COMPLEX
     Indication: Haemorrhage intracranial
     Dosage: UNK
     Route: 065

REACTIONS (1)
  - Death [Fatal]
